FAERS Safety Report 25428357 (Version 1)
Quarter: 2025Q2

REPORT INFORMATION
  Report Type: Spontaneous
  Country: AR (occurrence: AR)
  Receive Date: 20250612
  Receipt Date: 20250612
  Transmission Date: 20250717
  Serious: Yes (Hospitalization)
  Sender: MYLAN
  Company Number: AR-MYLANLABS-2025M1049024

PATIENT
  Sex: Male

DRUGS (5)
  1. CLOZAPINE [Suspect]
     Active Substance: CLOZAPINE
     Indication: Product used for unknown indication
  2. CLOZAPINE [Suspect]
     Active Substance: CLOZAPINE
     Dosage: 350 MILLIGRAM, QD
  3. VALPROATE [Concomitant]
     Active Substance: VALPROIC ACID
  4. DIAZEPAM [Concomitant]
     Active Substance: DIAZEPAM
  5. QUETIAPINE [Concomitant]
     Active Substance: QUETIAPINE

REACTIONS (1)
  - Psychiatric decompensation [Unknown]
